FAERS Safety Report 15357319 (Version 3)
Quarter: 2021Q4

REPORT INFORMATION
  Report Type: Spontaneous
  Country: US (occurrence: US)
  Receive Date: 20180906
  Receipt Date: 20211129
  Transmission Date: 20220303
  Serious: Yes (Disabling, Other)
  Sender: FDA-Public Use
  Company Number: US-TEVA-2018-US-951729

PATIENT
  Age: 61 Year
  Sex: Female

DRUGS (25)
  1. DOCETAXEL [Suspect]
     Active Substance: DOCETAXEL
     Indication: Breast cancer female
     Dosage: 5 CYCLE, EVERY 3 WEEKS, 10 MG/ML 8ML MDV; 149 MG ON FIRST 2 CYCLES AND 150 MG ON REMAINING CYCLES
     Route: 042
     Dates: start: 20141218, end: 20150413
  2. CARBOPLATIN [Suspect]
     Active Substance: CARBOPLATIN
     Indication: Breast cancer female
     Dosage: 6 CYCLE, EVERY 3 WEEKS, 900 MG IN 500 CC NS IVPB OVER 1 HR
     Route: 042
     Dates: start: 20141218, end: 20150413
  3. DOCETAXEL [Suspect]
     Active Substance: DOCETAXEL
     Indication: Breast cancer female
     Dosage: 5 CYCLE, EVERY 3 WEEKS, 10 MG/ML 2ML MDV; 149 MG ON FIRST 2 CYCLES AND 150 MG ON REMAINING CYCLES
     Route: 042
     Dates: start: 20141218, end: 20150413
  4. DOCETAXEL [Suspect]
     Active Substance: DOCETAXEL
     Indication: Breast cancer female
     Dosage: 5 CYCLE, EVERY 3 WEEKS, 10 MG/ML 8ML MDV; 149 MG ON FIRST 2 CYCLES AND 150 MG ON REMAINING CYCLES
     Route: 042
     Dates: start: 20141218, end: 20150413
  5. DOCETAXEL [Suspect]
     Active Substance: DOCETAXEL
     Indication: Breast cancer female
     Dosage: 1 DOSE (CYCLE 2), 80 MG/4 ML VIAL, 149 MG
     Route: 042
     Dates: start: 20150108, end: 20150108
  6. ALLEGRA [Concomitant]
     Active Substance: FEXOFENADINE HYDROCHLORIDE
     Dosage: 1 DOSAGE FORMS DAILY; PRESENT
     Route: 048
     Dates: start: 2010
  7. VITAMIN D [Concomitant]
     Active Substance: VITAMIN D NOS
     Route: 065
  8. CALCIUM [Concomitant]
     Active Substance: CALCIUM
     Route: 048
  9. MELOXICAM [Concomitant]
     Active Substance: MELOXICAM
     Dosage: PRESENT
     Route: 048
     Dates: start: 2010
  10. ATORVASTATIN [Concomitant]
     Active Substance: ATORVASTATIN
     Dosage: PRESENT
     Route: 048
     Dates: start: 2010
  11. LISINOPRIL AND HYDROCHLOROTHIAZIDE [Concomitant]
     Active Substance: HYDROCHLOROTHIAZIDE\LISINOPRIL
     Dosage: PRESENT, 20-25 MG
     Route: 048
     Dates: start: 2005
  12. LEVOTHYROXINE [Concomitant]
     Active Substance: LEVOTHYROXINE
     Dosage: PRESENT
     Route: 048
     Dates: start: 2010
  13. OMEPRAZOLE [Concomitant]
     Active Substance: OMEPRAZOLE
     Dosage: PRESENT
     Route: 048
     Dates: start: 2010
  14. ZOFRAN [Concomitant]
     Active Substance: ONDANSETRON HYDROCHLORIDE
     Dosage: Q8H
     Route: 048
     Dates: start: 2012, end: 2012
  15. IRON [Concomitant]
     Active Substance: IRON
     Indication: Iron deficiency anaemia
     Dosage: ON AND OFF THROUGH THE YEARS
     Route: 048
  16. TAMOXIFEN [Concomitant]
     Active Substance: TAMOXIFEN
     Dosage: PRESENT
     Route: 065
     Dates: start: 2010
  17. AMLODIPINE [Concomitant]
     Active Substance: AMLODIPINE BESYLATE
     Route: 048
  18. ASPIRIN [Concomitant]
     Active Substance: ASPIRIN
     Route: 048
  19. COLACE [Concomitant]
     Active Substance: DOCUSATE SODIUM
     Route: 048
  20. LETROZOLE [Concomitant]
     Active Substance: LETROZOLE
     Route: 048
  21. ALOXI [Concomitant]
     Active Substance: PALONOSETRON HYDROCHLORIDE
     Route: 042
     Dates: start: 20141218, end: 20150413
  22. DEXAMETHASONE [Concomitant]
     Active Substance: DEXAMETHASONE
     Route: 042
     Dates: start: 20141218, end: 20150413
  23. DIPHENHYDRAMINE [Concomitant]
     Active Substance: DIPHENHYDRAMINE
     Route: 042
     Dates: start: 20141218, end: 20150413
  24. PEPCID [Concomitant]
     Active Substance: FAMOTIDINE
     Route: 042
     Dates: start: 20141218, end: 20150413
  25. NEULASTA [Concomitant]
     Active Substance: PEGFILGRASTIM
     Route: 058
     Dates: start: 20150109, end: 20150414

REACTIONS (15)
  - Alopecia areata [Not Recovered/Not Resolved]
  - Madarosis [Not Recovered/Not Resolved]
  - Neuropathy peripheral [Unknown]
  - Hair texture abnormal [Not Recovered/Not Resolved]
  - Hair colour changes [Not Recovered/Not Resolved]
  - Weight decreased [Recovered/Resolved]
  - Diarrhoea [Recovered/Resolved]
  - Decreased appetite [Recovered/Resolved]
  - Nausea [Recovered/Resolved]
  - Urinary tract infection [Unknown]
  - Fatigue [Unknown]
  - Hypersensitivity [Unknown]
  - Arthralgia [Unknown]
  - Hypotension [Unknown]
  - Sciatica [Unknown]

NARRATIVE: CASE EVENT DATE: 20141218
